FAERS Safety Report 13360224 (Version 1)
Quarter: 2017Q1

REPORT INFORMATION
  Report Type: Spontaneous
  Country: US (occurrence: US)
  Receive Date: 20170322
  Receipt Date: 20170322
  Transmission Date: 20170429
  Serious: No
  Sender: FDA-Public Use
  Company Number: US-PFIZER INC-2017121263

PATIENT
  Sex: Male

DRUGS (3)
  1. LIPITOR [Interacting]
     Active Substance: ATORVASTATIN CALCIUM
     Dosage: UNK
  2. LYRICA [Suspect]
     Active Substance: PREGABALIN
     Indication: NERVE INJURY
  3. SIMVASTATIN. [Interacting]
     Active Substance: SIMVASTATIN
     Dosage: UNK

REACTIONS (3)
  - Drug interaction [Unknown]
  - Peripheral swelling [Unknown]
  - Vitamin B12 increased [Unknown]
